FAERS Safety Report 9276605 (Version 1)
Quarter: 2013Q2

REPORT INFORMATION
  Report Type: Spontaneous
  Country: US (occurrence: None)
  Receive Date: 20130501
  Receipt Date: 20130501
  Transmission Date: 20140414
  Serious: Yes (Hospitalization)
  Sender: FDA-Public Use
  Company Number: 2013STPI000133

PATIENT
  Age: 85 Year
  Sex: Female

DRUGS (4)
  1. MATULANE (PROCARBAZINE HYDROCHLORIDE) CAPSULE, 50MG [Suspect]
     Route: 048
     Dates: start: 201304, end: 20130418
  2. ETOPOSIDE (ETOPOSIDE) [Suspect]
  3. CYCLOPHOSPHAMIDE (CYCLOPHOSPHAMIDE) [Suspect]
  4. PREDNISONE (PREDNISONE) [Suspect]

REACTIONS (6)
  - Dehydration [None]
  - Hypokalaemia [None]
  - Hyponatraemia [None]
  - Pancytopenia [None]
  - Pneumonia viral [None]
  - Febrile neutropenia [None]
